FAERS Safety Report 6133085-5 (Version None)
Quarter: 2009Q1

REPORT INFORMATION
  Report Type: 
  Country: None (occurrence: None)
  Receive Date: 20090325
  Receipt Date: 20090325
  Transmission Date: 20090719
  Serious: Yes (Death)
  Sender: FDA-Public Use
  Company Number: None

PATIENT
  Age: 48 Year
  Sex: Male
  Weight: 107 kg

DRUGS (1)
  1. PEGINTERFERON ALPHA 2A 180 MCG (INJECTION ROCHE [Suspect]
     Indication: HEPATITIS C
     Dosage: 10 MCG INJECTION ONCE WEEKLY SQ
     Route: 058
     Dates: start: 20080627, end: 20080817

REACTIONS (3)
  - ALCOHOL USE [None]
  - COMPLETED SUICIDE [None]
  - TREATMENT NONCOMPLIANCE [None]
